FAERS Safety Report 6985549-X (Version None)
Quarter: 2010Q3

REPORT INFORMATION
  Report Type: 
  Country: None (occurrence: None)
  Receive Date: 20100915
  Receipt Date: 20100902
  Transmission Date: 20110219
  Serious: Yes (Other)
  Sender: FDA-Public Use
  Company Number: US-JNJFOC-20100902388

PATIENT

DRUGS (5)
  1. CHILDREN'S MOTRIN [Suspect]
     Route: 048
  2. CHILDREN'S MOTRIN [Suspect]
     Indication: HEADACHE
     Route: 048
  3. CHILDREN'S TYLENOL SUSPENSION [Suspect]
     Route: 048
  4. CHILDREN'S TYLENOL SUSPENSION [Suspect]
     Indication: HEADACHE
     Route: 048
  5. BENADRYL [Suspect]
     Indication: HEADACHE

REACTIONS (4)
  - APPENDIX DISORDER [None]
  - LYMPHADENITIS [None]
  - OROPHARYNGEAL PAIN [None]
  - PRODUCT QUALITY ISSUE [None]
